FAERS Safety Report 9227785 (Version 1)
Quarter: 2013Q1

REPORT INFORMATION
  Report Type: Spontaneous
  Country: US (occurrence: None)
  Receive Date: 20121031
  Receipt Date: 20121031
  Transmission Date: 20140127
  Serious: No
  Sender: FDA-Public Use
  Company Number: PHEH2012US015617

PATIENT
  Age: 45 Year
  Sex: Female

DRUGS (1)
  1. GILENYA (FTY)CAPSULE, 0.5MG [Suspect]
     Indication: MULTIPLE SCLEROSIS
     Route: 048
     Dates: start: 20120712, end: 20120808

REACTIONS (7)
  - Feeling abnormal [None]
  - Muscular weakness [None]
  - Pain in extremity [None]
  - Oedema peripheral [None]
  - Joint dislocation [None]
  - Fall [None]
  - Multiple sclerosis [None]
